FAERS Safety Report 6271109-5 (Version None)
Quarter: 2009Q3

REPORT INFORMATION
  Report Type: 
  Country: None (occurrence: None)
  Receive Date: 20090716
  Receipt Date: 20090709
  Transmission Date: 20100115
  Serious: Yes (Other)
  Sender: FDA-Public Use
  Company Number: GB-ABBOTT-09P-167-0584298-00

PATIENT
  Age: 65 Year
  Sex: Female
  Weight: 61.7 kg

DRUGS (3)
  1. KLARICID TABLETS [Suspect]
     Indication: LOWER RESPIRATORY TRACT INFECTION
     Dates: start: 20090120, end: 20090121
  2. CLOPIDOGREL [Concomitant]
     Indication: DRUG USE FOR UNKNOWN INDICATION
  3. LEVOTHYROXINE SODIUM [Concomitant]
     Indication: DRUG USE FOR UNKNOWN INDICATION

REACTIONS (2)
  - ARRHYTHMIA [None]
  - PALPITATIONS [None]
